FAERS Safety Report 6023793-9 (Version None)
Quarter: 2008Q4

REPORT INFORMATION
  Report Type: 
  Country: None (occurrence: None)
  Receive Date: 20081230
  Receipt Date: 20081224
  Transmission Date: 20090506
  Serious: Yes (Hospitalization)
  Sender: FDA-Public Use
  Company Number: JP-ALLERGAN-0816371US

PATIENT
  Sex: Female

DRUGS (8)
  1. BOTULINUM TOXIN TYPE A [Suspect]
     Indication: TORTICOLLIS
     Dosage: 65 UNITS, SINGLE
     Route: 030
     Dates: start: 20061124, end: 20061124
  2. ASPIRIN DIALUMINATE [Suspect]
     Indication: THROMBOSIS PROPHYLAXIS
     Dosage: 81 MG, QD
     Route: 048
     Dates: start: 20061101
  3. MENATETRENONE [Concomitant]
     Indication: OSTEOPOROSIS
     Dosage: 45 MG, QD
     Route: 048
     Dates: start: 20061107
  4. CLOTIAZEPAM [Concomitant]
     Indication: ANXIETY
     Dosage: 15 MG, QD
     Route: 048
     Dates: start: 20061107
  5. ALFACALCIDOL [Concomitant]
     Indication: OSTEOPOROSIS
     Dosage: 0.75 UG, QD
     Route: 048
     Dates: start: 20061107
  6. LOXOPROFEN SODIUM [Concomitant]
     Indication: PAIN
     Dosage: 120 MG, QD
     Route: 048
     Dates: start: 20061107
  7. TEPRENONE [Concomitant]
     Indication: PAIN
     Dosage: 100 MG, QD
     Route: 048
     Dates: start: 20061107
  8. MAGNESIUM OXIDE [Concomitant]
     Indication: CONSTIPATION
     Dosage: 750 MG, QD
     Route: 048
     Dates: start: 20061107

REACTIONS (1)
  - CEREBRAL HAEMORRHAGE [None]
